FAERS Safety Report 20586422 (Version 1)
Quarter: 2022Q1

REPORT INFORMATION
  Report Type: Spontaneous
  Country: US (occurrence: US)
  Receive Date: 20220313
  Receipt Date: 20220313
  Transmission Date: 20220423
  Serious: Yes (Other)
  Sender: FDA-Public Use
  Company Number: US-drreddys-LIT/USA/22/0147543

PATIENT
  Age: 14 Year
  Sex: Female

DRUGS (7)
  1. LEVETIRACETAM [Suspect]
     Active Substance: LEVETIRACETAM
     Indication: Jeavons syndrome
  2. TOPIRAMATE [Concomitant]
     Active Substance: TOPIRAMATE
     Indication: Jeavons syndrome
  3. RUFINAMIDE [Concomitant]
     Active Substance: RUFINAMIDE
     Indication: Jeavons syndrome
  4. VALPROATE [Concomitant]
     Active Substance: VALPROIC ACID
     Indication: Jeavons syndrome
  5. ZONISAMIDE [Concomitant]
     Active Substance: ZONISAMIDE
     Indication: Jeavons syndrome
  6. ETHOSUXIMIDE [Concomitant]
     Active Substance: ETHOSUXIMIDE
     Indication: Product used for unknown indication
  7. CLONAZEPAM [Concomitant]
     Active Substance: CLONAZEPAM
     Indication: Product used for unknown indication

REACTIONS (1)
  - Anger [Unknown]
